FAERS Safety Report 5249869-1 (Version None)
Quarter: 2007Q1

REPORT INFORMATION
  Report Type: 
  Country: None (occurrence: None)
  Receive Date: 20070228
  Receipt Date: 20070219
  Transmission Date: 20070707
  Serious: Yes (Life-Threatening, Hospitalization, Other)
  Sender: FDA-Public Use
  Company Number: 2006CG02011

PATIENT
  Age: 23941 Day
  Sex: Female
  Weight: 65 kg

DRUGS (16)
  1. NAROPEINE [Suspect]
     Indication: POSTOPERATIVE ANALGESIA
     Route: 053
     Dates: start: 20061205, end: 20061205
  2. NAROPEINE [Suspect]
     Route: 053
     Dates: start: 20061205, end: 20061211
  3. PROPOFOL [Concomitant]
     Indication: GENERAL ANAESTHESIA
     Route: 042
     Dates: start: 20061205, end: 20061205
  4. SUFENTANIL CITRATE [Concomitant]
     Indication: GENERAL ANAESTHESIA
     Route: 042
     Dates: start: 20061205
  5. ETOMIDATE [Concomitant]
     Indication: GENERAL ANAESTHESIA
     Dates: start: 20061205
  6. NIMBEX [Concomitant]
     Indication: GENERAL ANAESTHESIA
     Dates: start: 20061205
  7. SEVOFLURANE [Concomitant]
     Dates: start: 20061205
  8. PERINDOPRIL ERBUMINE [Concomitant]
  9. TAHOR [Concomitant]
  10. SEROPLEX [Concomitant]
  11. XANAX [Concomitant]
  12. NOCTRAN [Concomitant]
  13. CARDENSIEL [Concomitant]
  14. HUMALOG [Concomitant]
  15. SINTROM [Concomitant]
  16. FRAXIPARINE [Concomitant]

REACTIONS (5)
  - CARDIAC ARREST [None]
  - HYPOPROTEINAEMIA [None]
  - OVERDOSE [None]
  - RESPIRATORY ARREST [None]
  - VENTRICULAR FIBRILLATION [None]
